FAERS Safety Report 8984329 (Version 1)
Quarter: 2012Q4

REPORT INFORMATION
  Report Type: Spontaneous
  Country: GB (occurrence: None)
  Receive Date: 20121212
  Receipt Date: 20121212
  Transmission Date: 20130627
  Serious: Yes (Hospitalization)
  Sender: FDA-Public Use
  Company Number: 2012-01741

PATIENT
  Age: 54 Year

DRUGS (13)
  1. LEVETIRACETAM (UNKNOWN) [Suspect]
     Indication: EPILEPSY
     Dosage: 2 gm (1 gm, 2 in 1 D),  Oral
UNK  -  Ongoing
     Route: 048
  2. CIPROFLOXACIN [Suspect]
     Indication: DRUG USE FOR UNKNOWN INDICATION
     Dosage: Unknown  (Unknown,  UNK),  Oral
     Route: 048
     Dates: start: 20121027, end: 20121028
  3. NITROFURANTOIN [Suspect]
     Indication: DRUG USE FOR UNKNOWN INDICATION
     Dosage: 400  mg  (100 mg,  4 in 1 D),  Oral
10/28/2012  -  10/29/2012
     Route: 048
     Dates: start: 20121028, end: 20121029
  4. TRIMETHOPRIM [Suspect]
     Indication: DRUG USE FOR UNKNOWN INDICATION
     Dosage: 400  mg  (100  mg,  4 in 1 D),  Oral
10/29/2012  -  10/30/2012
     Route: 048
     Dates: start: 20121029, end: 20121030
  5. CHLORPHENAMINE [Concomitant]
  6. COLESTYRAMINE [Concomitant]
  7. CYCLIZINE [Concomitant]
  8. DOMPERIDONE [Concomitant]
  9. LOPERAMIDE [Concomitant]
  10. METOCLOPRAMIDE [Concomitant]
  11. OMEPRAZOLE [Concomitant]
  12. PARACETAMOL [Concomitant]
  13. TOPIRAMATE [Concomitant]

REACTIONS (1)
  - Drug reaction with eosinophilia and systemic symptoms [None]
